FAERS Safety Report 7939485-2 (Version None)
Quarter: 2011Q4

REPORT INFORMATION
  Report Type: 
  Country: None (occurrence: None)
  Receive Date: 20111125
  Receipt Date: 20111116
  Transmission Date: 20120403
  Serious: Yes (Other)
  Sender: FDA-Public Use
  Company Number: US-BAYER-2011-041420

PATIENT
  Age: 25 Year
  Sex: Female
  Weight: 84 kg

DRUGS (5)
  1. YAZ [Suspect]
     Indication: CONTRACEPTION
     Dosage: UNK
     Dates: start: 20090301, end: 20091201
  2. PROPO-N/APAP [Concomitant]
     Dosage: UNK
     Route: 048
     Dates: start: 20091001
  3. YAZ [Suspect]
     Indication: PREMENSTRUAL SYNDROME
  4. DICYCLOMINE [Concomitant]
     Dosage: 10 MG, UNK
     Route: 048
     Dates: start: 20090924
  5. ASACOL [Concomitant]
     Dosage: 400 MG, UNK
     Route: 048
     Dates: start: 20091113

REACTIONS (7)
  - EMOTIONAL DISTRESS [None]
  - GALLBLADDER INJURY [None]
  - INJURY [None]
  - ANXIETY [None]
  - CHOLECYSTITIS CHRONIC [None]
  - ANHEDONIA [None]
  - PAIN [None]
